FAERS Safety Report 20930296 (Version 1)
Quarter: 2022Q2

REPORT INFORMATION
  Report Type: Spontaneous
  Country: US (occurrence: US)
  Receive Date: 20220608
  Receipt Date: 20220608
  Transmission Date: 20220721
  Serious: Yes (Hospitalization, Other)
  Sender: FDA-Public Use
  Company Number: US-drreddys-SPO/USA/22/0150895

PATIENT
  Age: 55 Year
  Sex: Male

DRUGS (2)
  1. LEVOTHYROXINE SODIUM [Interacting]
     Active Substance: LEVOTHYROXINE SODIUM
     Indication: Primary hypothyroidism
  2. CARBAMAZEPINE [Interacting]
     Active Substance: CARBAMAZEPINE
     Indication: Affective disorder

REACTIONS (4)
  - Hypothyroidism [Recovering/Resolving]
  - Hyponatraemia [Recovering/Resolving]
  - Depressed mood [Recovering/Resolving]
  - Drug interaction [Recovered/Resolved]
